FAERS Safety Report 8586346 (Version 5)
Quarter: 2012Q4

REPORT INFORMATION
  Report Type: 
  Country: MX (occurrence: MX)
  Receive Date: 20120530
  Receipt Date: 20121008
  Transmission Date: 20130627
  Serious: Yes (Death, Hospitalization, Other)
  Sender: FDA-Public Use
  Company Number: PHHY2012MX045428

PATIENT
  Age: 29 Year
  Sex: Male

DRUGS (3)
  1. CO-DIOVAN [Suspect]
     Indication: HYPERTENSION
     Dosage: 1 DF (160 mg vals and 12.5 mg hydro) daily
     Dates: start: 20120129, end: 20120520
  2. INSULIN [Concomitant]
     Indication: TYPE 1 DIABETES MELLITUS
     Dosage: 30 IU, UNK
  3. INSULIN [Concomitant]
     Dosage: 15 IU, daily

REACTIONS (27)
  - Death [Fatal]
  - Infarction [Recovered/Resolved]
  - Choking [Recovered/Resolved]
  - Renal injury [Recovered/Resolved]
  - Renal disorder [Recovered/Resolved]
  - Cardiac murmur [Recovered/Resolved]
  - Chest pain [Recovered/Resolved]
  - Gastritis [Recovered/Resolved]
  - Anaemia [Recovered/Resolved]
  - Blood glucose increased [Recovered/Resolved]
  - Syncope [Recovered/Resolved]
  - Vomiting [Recovered/Resolved]
  - Diarrhoea [Recovered/Resolved]
  - Renal failure [Not Recovered/Not Resolved]
  - Fluid retention [Unknown]
  - Pancreatitis [Recovered/Resolved]
  - Abdominal distension [Recovering/Resolving]
  - Abdominal pain upper [Recovered/Resolved]
  - Pulmonary oedema [Recovered/Resolved]
  - Dyspnoea [Recovered/Resolved]
  - Asphyxia [Unknown]
  - Oedema peripheral [Unknown]
  - Malaise [Unknown]
  - Blood cholesterol increased [Recovered/Resolved]
  - Emotional disorder [Unknown]
  - Vision blurred [Recovered/Resolved]
  - Hypertension [Unknown]
